FAERS Safety Report 7244649-X (Version None)
Quarter: 2011Q1

REPORT INFORMATION
  Report Type: 
  Country: None (occurrence: None)
  Receive Date: 20110125
  Receipt Date: 20110117
  Transmission Date: 20110831
  Serious: Yes (Other)
  Sender: FDA-Public Use
  Company Number: US-GENENTECH-312637

PATIENT
  Age: 46 Year
  Sex: Female

DRUGS (4)
  1. DEXAMETHASONE [Suspect]
     Indication: LYMPHOCYTIC LYMPHOMA
     Dosage: UNK
     Route: 065
  2. MITOXANTRONE [Suspect]
     Indication: LYMPHOCYTIC LYMPHOMA
     Dosage: UNK
     Route: 065
  3. RITUXIMAB [Suspect]
     Indication: LYMPHOCYTIC LYMPHOMA
     Dosage: UNK
     Route: 065
  4. FLUDARABINE [Suspect]
     Indication: LYMPHOCYTIC LYMPHOMA
     Dosage: UNK
     Route: 065

REACTIONS (1)
  - ACUTE PROMYELOCYTIC LEUKAEMIA [None]
